FAERS Safety Report 16201473 (Version 2)
Quarter: 2019Q4

REPORT INFORMATION
  Report Type: Spontaneous
  Country: PL (occurrence: PL)
  Receive Date: 20190416
  Receipt Date: 20191014
  Transmission Date: 20200122
  Serious: Yes (Other)
  Sender: FDA-Public Use
  Company Number: PL-SUN PHARMACEUTICAL INDUSTRIES LTD-2019R1-205351

PATIENT
  Age: 1 Month
  Sex: Male

DRUGS (1)
  1. METHIMAZOLE. [Suspect]
     Active Substance: METHIMAZOLE
     Indication: ANTI-THYROID ANTIBODY
     Dosage: UNK
     Route: 064

REACTIONS (2)
  - Hypothyroidism [Unknown]
  - Foetal exposure during pregnancy [Unknown]
